FAERS Safety Report 13546547 (Version 4)
Quarter: 2017Q2

REPORT INFORMATION
  Report Type: Spontaneous
  Country: US (occurrence: US)
  Receive Date: 20170515
  Receipt Date: 20170619
  Transmission Date: 20170830
  Serious: Yes (Death, Hospitalization, Other)
  Sender: FDA-Public Use
  Company Number: US-PFIZER INC-2017206178

PATIENT
  Age: 71 Year
  Sex: Male
  Weight: 83.9 kg

DRUGS (2)
  1. INLYTA [Suspect]
     Active Substance: AXITINIB
     Indication: RENAL CANCER
     Dosage: 5 MG, 2X/DAY
     Route: 048
     Dates: end: 201705
  2. INLYTA [Suspect]
     Active Substance: AXITINIB
     Indication: RENAL CANCER METASTATIC
     Dosage: 5 MG, 2X/DAY  (Q 12 HOURS)
     Route: 048
     Dates: start: 20160211

REACTIONS (8)
  - Haematuria [Recovering/Resolving]
  - Pulmonary oedema [Recovering/Resolving]
  - Second primary malignancy [Recovering/Resolving]
  - Urinary bladder haemorrhage [Recovering/Resolving]
  - Bladder neoplasm [Recovering/Resolving]
  - Death [Fatal]
  - Unresponsive to stimuli [Recovering/Resolving]
  - Escherichia infection [Recovering/Resolving]
